FAERS Safety Report 5449588-2 (Version None)
Quarter: 2007Q3

REPORT INFORMATION
  Report Type: 
  Country: None (occurrence: None)
  Receive Date: 20070910
  Receipt Date: 20060511
  Transmission Date: 20080115
  Serious: Yes (Death)
  Sender: FDA-Public Use
  Company Number: 2006VX001775

PATIENT
  Age: 58 Year
  Sex: Male

DRUGS (4)
  1. TASMAR [Suspect]
     Dosage: 200 MG; TID; PO
     Route: 048
  2. SINEMET [Concomitant]
  3. BROMOCRIPTINE MESYLATE [Concomitant]
  4. AMANTADINE HCL [Concomitant]

REACTIONS (1)
  - PULMONARY OEDEMA [None]
